FAERS Safety Report 7442201-4 (Version None)
Quarter: 2011Q2

REPORT INFORMATION
  Report Type: 
  Country: None (occurrence: None)
  Receive Date: 20110428
  Receipt Date: 20110415
  Transmission Date: 20111010
  Serious: Yes (Hospitalization, Other)
  Sender: FDA-Public Use
  Company Number: PHHY2011US13219

PATIENT
  Sex: Female
  Weight: 88.55 kg

DRUGS (30)
  1. SYNTHROID [Concomitant]
  2. TOVIAZ [Concomitant]
  3. CLOPIDOGREL SULFATE [Concomitant]
     Dosage: 75 MG, EVERY DAY
  4. LEVOTHYROXINE SODIUM [Concomitant]
  5. POTASSIUM CHLORIDE [Concomitant]
     Dosage: 20 MEQ, BID
     Route: 048
  6. FUROSEMIDE [Concomitant]
     Dosage: 40 MG, BID
     Route: 048
  7. DILTIAZEM HCL [Concomitant]
     Dosage: 300 MG, EVERY DAY
  8. SYSTANE (PROPYLENE GLYCOL/MACROGOL) [Concomitant]
  9. EXJADE [Suspect]
     Indication: MYELODYSPLASTIC SYNDROME
     Dosage: 500 MG, TID
     Route: 048
     Dates: start: 20110127
  10. EXJADE [Suspect]
     Indication: IRON OVERLOAD
     Dosage: 500 MG, DAILY
     Route: 048
  11. LASIX [Concomitant]
  12. ENABLEX [Concomitant]
  13. DARIFENACIN HYDROBROMIDE [Concomitant]
     Dosage: UNK, EVERY DAY
  14. MOXIFLOXACIN HYDROCHLORIDE [Concomitant]
     Dosage: 0.5 MG, UNK
  15. AMOXICILLIN AND CLAVULANATE POTASSIUM [Concomitant]
     Dosage: 500 MG, TID
  16. ALLOPURINOL [Concomitant]
  17. VESICARE [Concomitant]
  18. PRAZOSIN HCL [Concomitant]
  19. NEUPOGEN [Concomitant]
  20. PANTOPRAZOLE SODIUM [Concomitant]
     Dosage: 40 MG, EVERY DAY
     Route: 048
  21. POTASSIUM [Concomitant]
  22. PLAVIX [Concomitant]
  23. XYZAL [Concomitant]
  24. CARTIA XT [Concomitant]
  25. PROTONIX [Concomitant]
     Dosage: UNK
  26. SYSTEN [Concomitant]
  27. ARANESP [Concomitant]
  28. CLOPIDOGREL [Concomitant]
  29. AMOXICILLIN [Concomitant]
  30. LEVOTHYROXINE SODIUM [Concomitant]
     Dosage: 125 MG, EVERY DAY
     Route: 048

REACTIONS (9)
  - NEUTROPENIA [None]
  - EPISTAXIS [None]
  - DIARRHOEA [None]
  - ANAEMIA [None]
  - LEUKOPENIA [None]
  - THROMBOCYTOPENIA [None]
  - WHITE BLOOD CELL COUNT DECREASED [None]
  - HAEMOGLOBIN DECREASED [None]
  - NEUTROPHIL COUNT DECREASED [None]
